FAERS Safety Report 12302207 (Version 2)
Quarter: 2016Q2

REPORT INFORMATION
  Report Type: Report from Study
  Country: BE (occurrence: BE)
  Receive Date: 20160425
  Receipt Date: 20160427
  Transmission Date: 20160815
  Serious: No
  Sender: FDA-Public Use
  Company Number: BE-ABBVIE-14P-013-1200146-00

PATIENT
  Age: 66 Year
  Sex: Male

DRUGS (22)
  1. DUODOPA [Suspect]
     Active Substance: CARBIDOPA\LEVODOPA
     Indication: PARKINSON^S DISEASE
     Dosage: MD= 8ML, CD= 3.7ML/H DURING 16HRS, EXTRA DOSE= 3ML
     Route: 050
     Dates: start: 20140113, end: 20140117
  2. DUODOPA [Suspect]
     Active Substance: CARBIDOPA\LEVODOPA
     Dosage: AM DOSE= 10ML, CONTIN DOSE= 4.5ML/H DURING 16HRS, EXTRA DOSE= 3ML
     Route: 050
     Dates: start: 20140127, end: 20140203
  3. DUODOPA [Suspect]
     Active Substance: CARBIDOPA\LEVODOPA
     Dosage: AM DOSE= 10ML, CONTIN DOSE= 5ML/H DURING 16HRS, EXTRA DOSE= 3ML
     Route: 050
     Dates: start: 20140313, end: 20140410
  4. DUODOPA [Suspect]
     Active Substance: CARBIDOPA\LEVODOPA
     Dosage: AM = 10 ML, CD= 5.3 ML/H DURING 16H, ED= 4ML
     Route: 050
     Dates: start: 20140829, end: 20141203
  5. DUODOPA [Suspect]
     Active Substance: CARBIDOPA\LEVODOPA
     Dosage: AM DOSE=8ML, CD=4.8ML/H FOR 16HRS AND ED=3ML
     Route: 050
     Dates: start: 20150205, end: 20150209
  6. TRIBVIT [Concomitant]
     Indication: PRODUCT USED FOR UNKNOWN INDICATION
  7. DUODOPA [Suspect]
     Active Substance: CARBIDOPA\LEVODOPA
     Dosage: AM DOSE= 10ML, CONTIN DOSE= 4.3ML/H DURING 16HRS, EXTRA DOSE= 3ML
     Route: 050
     Dates: start: 20140117, end: 20140127
  8. DUODOPA [Suspect]
     Active Substance: CARBIDOPA\LEVODOPA
     Dosage: AM DOSE= 10ML, CONTIN DOSE= 5.3ML/H DURING 16HRS, EXTRA DOSE=3ML
     Route: 050
     Dates: start: 20140219, end: 20140313
  9. DUODOPA [Suspect]
     Active Substance: CARBIDOPA\LEVODOPA
     Dosage: AM DOSE=8ML, CD=4.5ML/H FOR 16HRS, ED=3ML
     Route: 050
     Dates: start: 20150820, end: 20160318
  10. DUODOPA [Suspect]
     Active Substance: CARBIDOPA\LEVODOPA
     Dosage: AM= 8 ML; CD= 3.9 ML/H DURING 16 HRS; ED= 3 ML
     Route: 050
     Dates: start: 20160419
  11. TOLTERODINE (DETRISUTOL RETARD) [Concomitant]
     Indication: PRODUCT USED FOR UNKNOWN INDICATION
  12. DUODOPA [Suspect]
     Active Substance: CARBIDOPA\LEVODOPA
     Dosage: AM DOSE= 10ML, C.D.= 5ML/H X16HRS, E.D.= 4ML Q 3 HRS.
     Route: 050
     Dates: start: 20140410, end: 20140505
  13. DUODOPA [Suspect]
     Active Substance: CARBIDOPA\LEVODOPA
     Dosage: AM DOSE= 10ML, CD= 5.1ML/H DURING 16HRS, ED=4ML
     Route: 050
     Dates: start: 20140818, end: 20140829
  14. DUODOPA [Suspect]
     Active Substance: CARBIDOPA\LEVODOPA
     Dosage: AM = 10 ML, CONTIN DOSE = 5.3 ML/H DURING 16H, EXTRA DOSE = 4ML
     Route: 050
     Dates: start: 20140505, end: 20140514
  15. DUODOPA [Suspect]
     Active Substance: CARBIDOPA\LEVODOPA
     Dosage: AM DOSE=8ML, CD=4.3ML/H FOR 16HRS, ED=3LK
     Route: 050
     Dates: start: 20160318, end: 20160419
  16. DUODOPA [Suspect]
     Active Substance: CARBIDOPA\LEVODOPA
     Dosage: AM DOSE= 10ML, CONTIN DOSE=5ML/H DURING 16HRS, EXTRA DOSE= 3ML
     Route: 050
     Dates: start: 20140212, end: 20140219
  17. DUODOPA [Suspect]
     Active Substance: CARBIDOPA\LEVODOPA
     Dosage: AM DOSE= 10ML, CONTIN DOSE= 5.3ML/H DURING 16HRS, EXTRA DOSE=4ML
     Route: 050
     Dates: start: 20140604, end: 20140818
  18. DUODOPA [Suspect]
     Active Substance: CARBIDOPA\LEVODOPA
     Dosage: AM = 8 ML, CD = 5.1 ML/H DURING 16H, ED = 4 ML
     Route: 050
     Dates: start: 20141203, end: 20150205
  19. DUODOPA [Suspect]
     Active Substance: CARBIDOPA\LEVODOPA
     Dosage: AM DOSE=8ML, CD=4.5ML/H FOR 16HRS AND ED=4ML
     Route: 050
     Dates: start: 20150209, end: 20150820
  20. DUODOPA [Suspect]
     Active Substance: CARBIDOPA\LEVODOPA
     Dosage: AM DOSE= 10ML, CONTIN DOSE= 4.7ML/H DURING 16HRS, EXTRA DOSE= 3ML
     Route: 050
     Dates: start: 20140203, end: 20140212
  21. DUODOPA [Suspect]
     Active Substance: CARBIDOPA\LEVODOPA
     Dosage: AM DOSE= 10ML, CONTIN DOSE= 5.3ML/H DURING 16HRS, EXTRA DOSE=4.5ML
     Route: 050
     Dates: start: 20140514, end: 20140604
  22. ALPRAZOLAM. [Concomitant]
     Active Substance: ALPRAZOLAM
     Indication: PRODUCT USED FOR UNKNOWN INDICATION

REACTIONS (14)
  - Device dislocation [Recovered/Resolved]
  - Drug ineffective [Unknown]
  - Hyperhidrosis [Unknown]
  - Dyskinesia [Unknown]
  - Fall [Unknown]
  - Underdose [Unknown]
  - Stoma site erythema [Recovered/Resolved]
  - Freezing phenomenon [Not Recovered/Not Resolved]
  - Incorrect route of drug administration [Recovered/Resolved]
  - Weight decreased [Unknown]
  - Gait disturbance [Unknown]
  - On and off phenomenon [Not Recovered/Not Resolved]
  - Dyskinesia [Unknown]
  - Dyskinesia [Not Recovered/Not Resolved]

NARRATIVE: CASE EVENT DATE: 20140818
